FAERS Safety Report 25999669 (Version 2)
Quarter: 2025Q4

REPORT INFORMATION
  Report Type: Other
  Country: EU (occurrence: EU)
  Receive Date: 20251105
  Receipt Date: 20251125
  Transmission Date: 20260117
  Serious: Yes (Hospitalization, Other)
  Sender: MACLEODS
  Company Number: EU-JNJFOC-20250534103

PATIENT

DRUGS (6)
  1. SILDENAFIL [Suspect]
     Active Substance: SILDENAFIL
     Indication: Pulmonary arterial hypertension
     Dosage: 3X20 MG
     Route: 065
     Dates: start: 202201
  2. VELETRI [Suspect]
     Active Substance: EPOPROSTENOL
     Indication: Pulmonary arterial hypertension
     Route: 042
     Dates: start: 202209
  3. BOSENTAN [Suspect]
     Active Substance: BOSENTAN
     Indication: Pulmonary arterial hypertension
     Route: 048
     Dates: start: 202202, end: 202211
  4. OPSUMIT [Suspect]
     Active Substance: MACITENTAN
     Indication: Pulmonary arterial hypertension
     Route: 048
     Dates: start: 202211
  5. ILOPROST [Suspect]
     Active Substance: ILOPROST
     Indication: Pulmonary arterial hypertension
     Dates: start: 202205, end: 202209
  6. MESALAMINE [Suspect]
     Active Substance: MESALAMINE
     Indication: Colitis ulcerative
     Route: 065

REACTIONS (14)
  - Cardiac failure [Unknown]
  - Liver injury [Recovered/Resolved]
  - Oxygen saturation decreased [Unknown]
  - Pulmonary arterial hypertension [Unknown]
  - Pleural thickening [Unknown]
  - Chronic respiratory failure [Unknown]
  - Hyperthyroidism [Unknown]
  - Colitis ulcerative [Unknown]
  - Lipoma [Unknown]
  - Large intestine polyp [Unknown]
  - Gastrointestinal disorder [Unknown]
  - Therapy change [Unknown]
  - N-terminal prohormone brain natriuretic peptide increased [Unknown]
  - Drug effect less than expected [Unknown]

NARRATIVE: CASE EVENT DATE: 20220201
